FAERS Safety Report 13581493 (Version 2)
Quarter: 2017Q3

REPORT INFORMATION
  Report Type: Report from Study
  Country: JP (occurrence: JP)
  Receive Date: 20170525
  Receipt Date: 20170725
  Transmission Date: 20171127
  Serious: Yes (Hospitalization, Other)
  Sender: FDA-Public Use
  Company Number: JP-GLAXOSMITHKLINE-A20005098

PATIENT
  Age: 29 Year
  Sex: Male

DRUGS (19)
  1. KOGENATE-FS [Concomitant]
     Indication: HAEMARTHROSIS
     Dosage: 1000 DF, UNK
     Dates: start: 20160401
  2. PENTAGIN [Concomitant]
     Active Substance: PENTAZOCINE HYDROCHLORIDE
     Indication: PNEUMOCYSTIS JIROVECII PNEUMONIA
     Dosage: 300 MG, QD
     Route: 055
     Dates: start: 19971101
  3. BERIZYM (JAPAN) [Concomitant]
     Indication: PANCREATITIS ACUTE
     Dosage: 2 G, TID
     Route: 048
     Dates: start: 19980706
  4. VIRACEPT [Concomitant]
     Active Substance: NELFINAVIR MESYLATE
     Indication: HIV INFECTION
     Dosage: 750 MG, TID
     Route: 048
     Dates: start: 19980928, end: 20040113
  5. ZERIT [Suspect]
     Active Substance: STAVUDINE
     Dosage: 80 MG, 1D
     Route: 048
     Dates: start: 19980330, end: 19980529
  6. VIDEX [Suspect]
     Active Substance: DIDANOSINE
     Dosage: 100 MG, BID
     Route: 048
     Dates: start: 19980921, end: 19980928
  7. RETROVIR [Concomitant]
     Active Substance: ZIDOVUDINE
     Indication: HIV INFECTION
     Dosage: UNK UNK, TID
     Route: 048
     Dates: start: 19960108, end: 19980330
  8. LAMIVUDINE. [Suspect]
     Active Substance: LAMIVUDINE
     Dosage: UNK UNK, BID
     Route: 048
     Dates: start: 19980928, end: 20091103
  9. ZERIT [Suspect]
     Active Substance: STAVUDINE
     Dosage: 80 MG, 1D
     Route: 048
     Dates: start: 19980715, end: 20091103
  10. VIDEX [Suspect]
     Active Substance: DIDANOSINE
     Indication: HIV INFECTION
     Dosage: 100 MG, BID
     Route: 048
     Dates: start: 19980422, end: 19980513
  11. VIDEX [Suspect]
     Active Substance: DIDANOSINE
     Dosage: 150 MG, BID
     Route: 048
     Dates: start: 19980513, end: 19980529
  12. VIDEX [Suspect]
     Active Substance: DIDANOSINE
     Dosage: 150 MG, BID
     Route: 048
     Dates: start: 19980715, end: 19980921
  13. SELBEX [Concomitant]
     Active Substance: TEPRENONE
     Indication: GASTROINTESTINAL MUCOSAL DISORDER
     Dosage: 150 MG, TID
     Route: 048
     Dates: start: 19980706
  14. FOY [Concomitant]
     Active Substance: GABEXATE MESYLATE
     Indication: PANCREATITIS ACUTE
     Route: 042
     Dates: start: 19980630, end: 19980706
  15. URSO [Concomitant]
     Active Substance: URSODIOL
     Indication: BILE DUCT STONE
     Dosage: 300 MG, UNK
     Route: 048
     Dates: start: 19980706
  16. COSPANON [Concomitant]
     Active Substance: FLOPROPIONE
     Indication: PANCREATITIS ACUTE
     Dosage: 120 MG, TID
     Route: 048
     Dates: start: 19980706
  17. LAMIVUDINE. [Suspect]
     Active Substance: LAMIVUDINE
     Indication: HIV INFECTION
     Dosage: UNK UNK, BID
     Route: 048
     Dates: start: 19960930, end: 19980422
  18. EPZICOM [Suspect]
     Active Substance: ABACAVIR SULFATE\LAMIVUDINE
     Indication: HIV INFECTION
     Dosage: 1 DF, 1D
     Route: 048
     Dates: start: 20110413
  19. ISENTRESS [Suspect]
     Active Substance: RALTEGRAVIR POTASSIUM
     Indication: HIV INFECTION
     Dosage: 800 MG, 1D
     Route: 048
     Dates: start: 20110413

REACTIONS (6)
  - Post procedural haemorrhage [Unknown]
  - Cholecystitis acute [Recovering/Resolving]
  - Cholelithiasis [Unknown]
  - Hypertension [Not Recovered/Not Resolved]
  - Bile duct stone [Recovering/Resolving]
  - Abdominal pain [Unknown]

NARRATIVE: CASE EVENT DATE: 19980518
